FAERS Safety Report 11884503 (Version 1)
Quarter: 2015Q4

REPORT INFORMATION
  Report Type: Spontaneous
  Country: US (occurrence: None)
  Receive Date: 20151231
  Receipt Date: 20151231
  Transmission Date: 20160305
  Serious: Yes (Hospitalization)
  Sender: FDA-Public Use
  Company Number: None

PATIENT
  Age: 89 Year
  Sex: Female
  Weight: 72 kg

DRUGS (1)
  1. PRAXBIND [Suspect]
     Active Substance: IDARUCIZUMAB
     Indication: PROCOAGULANT THERAPY
     Dosage: 2 VIALS
     Route: 042
     Dates: start: 20151101, end: 20151101

REACTIONS (3)
  - Post procedural complication [None]
  - Femoral artery occlusion [None]
  - Peripheral arterial occlusive disease [None]

NARRATIVE: CASE EVENT DATE: 20151120
